FAERS Safety Report 10085613 (Version 1)
Quarter: 2014Q2

REPORT INFORMATION
  Report Type: Spontaneous
  Country: US (occurrence: US)
  Receive Date: 20140418
  Receipt Date: 20140418
  Transmission Date: 20141212
  Serious: Yes (Hospitalization)
  Sender: FDA-Public Use
  Company Number: US-ASTRAZENECA-2014SE25557

PATIENT
  Age: 50 Year
  Sex: Female
  Weight: 105 kg

DRUGS (24)
  1. SEROQUEL XR [Suspect]
     Route: 048
     Dates: start: 20140206
  2. SEROQUEL XR [Suspect]
     Route: 048
     Dates: start: 20140206
  3. LISINOPRIL [Suspect]
     Route: 048
  4. CLONAZEPAM [Suspect]
     Indication: DEPRESSION
     Route: 048
     Dates: start: 20140206
  5. CLONAZEPAM [Suspect]
     Indication: DEPRESSION
     Route: 048
     Dates: start: 20140206
  6. TRAZADONE [Suspect]
     Indication: DEPRESSION
     Route: 048
     Dates: start: 20140206
  7. FLEXERIL [Suspect]
     Indication: BACK PAIN
     Route: 048
     Dates: start: 20140206
  8. FLEXERIL [Suspect]
     Indication: FIBROMYALGIA
     Route: 048
     Dates: start: 20140206
  9. ATIVAN [Suspect]
     Indication: DEPRESSION
     Route: 048
     Dates: start: 20140206
  10. TOPIRAMATE [Suspect]
     Route: 048
     Dates: start: 20140206
  11. LAMOTRIGINE [Suspect]
     Route: 048
     Dates: start: 20140206
  12. NALDEMEDINE [Suspect]
     Route: 048
     Dates: start: 20131219, end: 20140327
  13. OXYCODONE/ACETAMINOPHEN [Concomitant]
  14. NORCO [Concomitant]
  15. ESTRADIOL/TESTOSTERONE [Concomitant]
  16. PROGESTERONE [Concomitant]
  17. CIPRODEX [Concomitant]
  18. MELOXICAM [Concomitant]
  19. TIZANIDINE [Concomitant]
  20. NEURONTIN [Concomitant]
  21. ZOLPIDEM [Concomitant]
  22. LEVOTHYROXINE [Concomitant]
  23. SENOKOT-S [Concomitant]
  24. CYMBALTA [Concomitant]

REACTIONS (2)
  - Psychotic disorder [Recovered/Resolved]
  - Hallucination, visual [Unknown]
